FAERS Safety Report 11542682 (Version 3)
Quarter: 2016Q1

REPORT INFORMATION
  Report Type: Spontaneous
  Country: US (occurrence: US)
  Receive Date: 20150923
  Receipt Date: 20160210
  Transmission Date: 20160525
  Serious: Yes (Hospitalization, Other)
  Sender: FDA-Public Use
  Company Number: US-ASTELLAS-2015US034318

PATIENT
  Sex: Male

DRUGS (1)
  1. TARCEVA [Suspect]
     Active Substance: ERLOTINIB HYDROCHLORIDE
     Indication: LUNG NEOPLASM MALIGNANT
     Dosage: SPLITTING 150 MG TABLET AND TAKING 75 MG DAILY
     Route: 048
     Dates: start: 20150625

REACTIONS (6)
  - Eye discharge [Unknown]
  - Increased upper airway secretion [Unknown]
  - Skin disorder [Unknown]
  - Rash [Unknown]
  - Intentional product misuse [Unknown]
  - Lung carcinoma cell type unspecified recurrent [Unknown]
